FAERS Safety Report 9588925 (Version 1)
Quarter: 2013Q4

REPORT INFORMATION
  Report Type: Spontaneous
  Country: US (occurrence: US)
  Receive Date: 20131003
  Receipt Date: 20131003
  Transmission Date: 20140711
  Serious: No
  Sender: FDA-Public Use
  Company Number: US-AMGEN-USASP2012066605

PATIENT
  Sex: Female

DRUGS (10)
  1. ENBREL [Suspect]
     Indication: RHEUMATOID ARTHRITIS
     Dosage: 50 MG, QWK
     Route: 058
  2. BENICAR [Concomitant]
     Dosage: 20 MG, UNK
  3. OMEPRAZOLE [Concomitant]
     Dosage: 40 MG, UNK
  4. SIMVASTATIN [Concomitant]
     Dosage: 10 MG, UNK
  5. NITROFURANTIN [Concomitant]
     Dosage: 100 MG, UNK
  6. VENLAFAXINE [Concomitant]
     Dosage: 75 MG, UNK
  7. FOLIC ACID [Concomitant]
     Dosage: 1 MG, UNK
  8. VITAMIN D                          /00107901/ [Concomitant]
     Dosage: 50000 UNIT, UNK
  9. CALCIUM +D                         /00944201/ [Concomitant]
     Dosage: UNK
  10. ARAVA [Concomitant]
     Dosage: 10 MG, UNK

REACTIONS (2)
  - Pain [Unknown]
  - Bladder disorder [Unknown]
